FAERS Safety Report 9377870 (Version 1)
Quarter: 2013Q3

REPORT INFORMATION
  Report Type: Spontaneous
  Country: US (occurrence: US)
  Receive Date: 20130701
  Receipt Date: 20130701
  Transmission Date: 20140515
  Serious: Yes (Hospitalization, Other)
  Sender: FDA-Public Use
  Company Number: US-BAYER-2013-076480

PATIENT
  Age: 77 Year
  Sex: Female

DRUGS (1)
  1. ACETYLSALICYLIC ACID [Suspect]
     Indication: ARTHRALGIA
     Dosage: 30 -40 TABLEST OF 81 MG PER DAY
     Route: 048

REACTIONS (6)
  - Atrioventricular block complete [Recovered/Resolved]
  - Toxicity to various agents [Recovered/Resolved]
  - Metabolic acidosis [Recovered/Resolved]
  - Respiratory alkalosis [Recovered/Resolved]
  - Cardiac arrest [Recovered/Resolved]
  - Accidental overdose [None]
